FAERS Safety Report 4964203-X (Version None)
Quarter: 2006Q2

REPORT INFORMATION
  Report Type: 
  Country: None (occurrence: None)
  Receive Date: 20060404
  Receipt Date: 20060404
  Transmission Date: 20061013
  Serious: Yes (Hospitalization, Other)
  Sender: FDA-Public Use
  Company Number: None

PATIENT
  Sex: Male

DRUGS (2)
  1. CYCLOPHOSPHAMIDE [Suspect]
     Indication: MULTIPLE MYELOMA
     Dosage: 7000 MG
     Dates: start: 20060320, end: 20060320
  2. G-CSF (FILGRASTIM, AMGEN) [Suspect]
     Dosage: 4550 MG
     Dates: start: 20060325

REACTIONS (2)
  - BODY TEMPERATURE INCREASED [None]
  - WHITE BLOOD CELL COUNT DECREASED [None]
